FAERS Safety Report 20592017 (Version 3)
Quarter: 2022Q1

REPORT INFORMATION
  Report Type: Report from Study
  Country: BE (occurrence: BE)
  Receive Date: 20220314
  Receipt Date: 20220325
  Transmission Date: 20220423
  Serious: Yes (Life-Threatening, Hospitalization, Other)
  Sender: FDA-Public Use
  Company Number: BE-PFIZER INC-202200387947

PATIENT
  Age: 76 Year
  Sex: Male
  Weight: 89 kg

DRUGS (1)
  1. VYNDAQEL [Suspect]
     Active Substance: TAFAMIDIS MEGLUMINE
     Indication: Amyloidosis
     Dosage: 61 MG, 1X/DAY
     Route: 048
     Dates: start: 20210316

REACTIONS (9)
  - Cardiac failure acute [Not Recovered/Not Resolved]
  - Chronic kidney disease [Unknown]
  - Pulmonary hypertension [Unknown]
  - Atrial fibrillation [Unknown]
  - Acute kidney injury [Unknown]
  - Left ventricular hypertrophy [Unknown]
  - Systolic dysfunction [Unknown]
  - Right ventricular hypertrophy [Unknown]
  - Normocytic anaemia [Unknown]

NARRATIVE: CASE EVENT DATE: 20220223
